FAERS Safety Report 6684003-2 (Version None)
Quarter: 2010Q2

REPORT INFORMATION
  Report Type: 
  Country: None (occurrence: None)
  Receive Date: 20100416
  Receipt Date: 20100405
  Transmission Date: 20101027
  Serious: Yes (Other)
  Sender: FDA-Public Use
  Company Number: US-JNJFOC-20100400963

PATIENT
  Sex: Male

DRUGS (2)
  1. TYLENOL COLD MULTI-SYMPTOM DAYTIME COOL BURST [Suspect]
     Indication: DRUG USE FOR UNKNOWN INDICATION
  2. TYLENOL COLD MULTI-SYMPTOM NIGHTTIME COOL BURST [Suspect]
     Indication: DRUG USE FOR UNKNOWN INDICATION

REACTIONS (1)
  - ADVERSE EVENT [None]
